FAERS Safety Report 8542557-5 (Version None)
Quarter: 2012Q3

REPORT INFORMATION
  Report Type: 
  Country: None (occurrence: None)
  Receive Date: 20120726
  Receipt Date: 20120720
  Transmission Date: 20120928
  Serious: Yes (Hospitalization)
  Sender: FDA-Public Use
  Company Number: BE-MSD-1206USA03831

PATIENT

DRUGS (8)
  1. FOLIC ACID [Concomitant]
     Indication: VITAMIN SUPPLEMENTATION
     Dosage: 10 MG, QD
     Route: 048
     Dates: start: 20120515
  2. OMEPRAZOLE [Concomitant]
     Indication: PROPHYLAXIS
     Dosage: 90 MG, QD
     Route: 048
     Dates: start: 20120515
  3. AVELOX [Concomitant]
     Indication: BRONCHOPNEUMONIA
     Dosage: 900 MG, QD
     Route: 048
     Dates: start: 20120515, end: 20120621
  4. PROMAGNOR [Concomitant]
     Indication: MINERAL SUPPLEMENTATION
     Dosage: UNK UNK, BID
     Route: 048
     Dates: start: 20120506, end: 20120618
  5. PROGRAF [Concomitant]
     Indication: PROPHYLAXIS
     Dosage: UNK UNK, BID
     Route: 048
     Dates: start: 20120512
  6. METHYLPREDNISOLONE [Concomitant]
     Dosage: 125 MG, QD
     Route: 048
     Dates: start: 20120601, end: 20120629
  7. CASPOFUNGIN ACETATE [Suspect]
     Dosage: 50 MG, QD
     Route: 042
     Dates: start: 20120523, end: 20120525
  8. ZOVIRAX [Concomitant]
     Indication: PROPHYLAXIS
     Dosage: 900 MG, TID
     Route: 048
     Dates: start: 20120507

REACTIONS (6)
  - NAUSEA [None]
  - BRONCHOPULMONARY ASPERGILLOSIS [None]
  - VOMITING [None]
  - DECREASED APPETITE [None]
  - DIARRHOEA [None]
  - GRAFT VERSUS HOST DISEASE [None]
